FAERS Safety Report 9511811 (Version 1)
Quarter: 2013Q3

REPORT INFORMATION
  Report Type: Spontaneous
  Country: US (occurrence: US)
  Receive Date: 20130910
  Receipt Date: 20130910
  Transmission Date: 20140515
  Serious: No
  Sender: FDA-Public Use
  Company Number: US-TEVA-429513USA

PATIENT
  Age: 29 Year
  Sex: Female
  Weight: 56.3 kg

DRUGS (1)
  1. PARAGARD 380A [Suspect]
     Indication: CONTRACEPTION
     Dates: start: 20120820

REACTIONS (2)
  - Pelvic discomfort [Not Recovered/Not Resolved]
  - Pain [Not Recovered/Not Resolved]
